FAERS Safety Report 23259285 (Version 1)
Quarter: 2023Q4

REPORT INFORMATION
  Report Type: Spontaneous
  Country: US (occurrence: None)
  Receive Date: 20231204
  Receipt Date: 20231204
  Transmission Date: 20240109
  Serious: Yes (Death, Hospitalization)
  Sender: FDA-Public Use
  Company Number: None

PATIENT
  Age: 53 Year
  Sex: Male
  Weight: 98 kg

DRUGS (2)
  1. CAPECITABINE [Suspect]
     Active Substance: CAPECITABINE
     Dosage: FREQUENCY : TWICE A DAY;?
     Route: 048
     Dates: start: 20231023, end: 20231026
  2. OXALIPLATIN [Suspect]
     Active Substance: OXALIPLATIN
     Dosage: FREQUENCY : ONCE;?
     Route: 042
     Dates: start: 20231023, end: 20231026

REACTIONS (14)
  - Chest pain [None]
  - Arthralgia [None]
  - Pain in jaw [None]
  - Foreign body in throat [None]
  - Chills [None]
  - Hot flush [None]
  - Panic attack [None]
  - Human rhinovirus test positive [None]
  - Therapy cessation [None]
  - Vomiting [None]
  - Unresponsive to stimuli [None]
  - Pulse absent [None]
  - Apnoea [None]
  - Toxicity to various agents [None]

NARRATIVE: CASE EVENT DATE: 20231026
